FAERS Safety Report 8179196-4 (Version None)
Quarter: 2012Q1

REPORT INFORMATION
  Report Type: 
  Country: None (occurrence: None)
  Receive Date: 20120302
  Receipt Date: 20120220
  Transmission Date: 20120608
  Serious: Yes (Hospitalization, Other)
  Sender: FDA-Public Use
  Company Number: US-BAYER-2011-029604

PATIENT
  Age: 21 Year
  Sex: Female
  Weight: 58.957 kg

DRUGS (3)
  1. YASMIN [Suspect]
     Indication: PRODUCT USED FOR UNKNOWN INDICATION
     Dosage: UNK
     Dates: start: 20050101, end: 20060101
  2. DROSPIRENONE AND ETHINYL ESTRADIOL [Suspect]
     Indication: PRODUCT USED FOR UNKNOWN INDICATION
     Dosage: UNK
     Dates: start: 20091201, end: 20100101
  3. IBUPROFEN TABLETS [Concomitant]

REACTIONS (3)
  - EMOTIONAL DISTRESS [None]
  - PAIN [None]
  - TRANSIENT ISCHAEMIC ATTACK [None]
